FAERS Safety Report 6522429-8 (Version None)
Quarter: 2009Q4

REPORT INFORMATION
  Report Type: 
  Country: None (occurrence: None)
  Receive Date: 20091230
  Receipt Date: 20091218
  Transmission Date: 20100525
  Serious: Yes (Death)
  Sender: FDA-Public Use
  Company Number: HOAFF40862

PATIENT
  Age: 40 Year
  Sex: Female

DRUGS (4)
  1. RISPERIDONE [Suspect]
     Indication: DRUG USE FOR UNKNOWN INDICATION
     Route: 048
  2. IMIPRAMINE [Suspect]
     Indication: DRUG USE FOR UNKNOWN INDICATION
  3. BENZTROPINE MESYLATE [Concomitant]
  4. IBUPROFEN [Concomitant]

REACTIONS (8)
  - ACUTE RESPIRATORY DISTRESS SYNDROME [None]
  - COMA [None]
  - DRUG ABUSE [None]
  - DRUG TOXICITY [None]
  - ELECTROCARDIOGRAM QT PROLONGED [None]
  - HYPOTENSION [None]
  - SEPSIS [None]
  - TACHYCARDIA [None]
